FAERS Safety Report 8268756-8 (Version None)
Quarter: 2012Q2

REPORT INFORMATION
  Report Type: 
  Country: None (occurrence: None)
  Receive Date: 20120409
  Receipt Date: 20120409
  Transmission Date: 20120825
  Serious: No
  Sender: FDA-Public Use
  Company Number: None

PATIENT
  Age: 69 Year
  Sex: Female
  Weight: 99.79 kg

DRUGS (1)
  1. ABILIFY [Suspect]
     Indication: AFFECTIVE DISORDER
     Dosage: ONE PER DAY -AT NIGHT-
     Dates: start: 20120329, end: 20120403

REACTIONS (2)
  - FEELING ABNORMAL [None]
  - PRODUCT QUALITY ISSUE [None]
